FAERS Safety Report 15694215 (Version 1)
Quarter: 2018Q4

REPORT INFORMATION
  Report Type: Spontaneous
  Country: KR (occurrence: KR)
  Receive Date: 20181206
  Receipt Date: 20181206
  Transmission Date: 20190205
  Serious: Yes (Other)
  Sender: FDA-Public Use
  Company Number: KR-JNJFOC-20181202933

PATIENT
  Sex: Female

DRUGS (1)
  1. RIVAROXABAN [Suspect]
     Active Substance: RIVAROXABAN
     Indication: ATRIAL FLUTTER
     Route: 048

REACTIONS (4)
  - Intra-abdominal pressure increased [Unknown]
  - Vascular rupture [Unknown]
  - Paraplegia [Not Recovered/Not Resolved]
  - Spinal subdural haematoma [Unknown]
